FAERS Safety Report 8288960-2 (Version None)
Quarter: 2012Q2

REPORT INFORMATION
  Report Type: 
  Country: None (occurrence: None)
  Receive Date: 20120412
  Receipt Date: 20120330
  Transmission Date: 20120825
  Serious: Yes (Hospitalization)
  Sender: FDA-Public Use
  Company Number: DSJ-2012-06269

PATIENT
  Sex: Female

DRUGS (3)
  1. ATROVASTATIN (ATORVASTATIN) (ATORVASTATIN) [Concomitant]
  2. AMLODIPINE BESYLATE AND OLMESARTAN MEDOXOMIL [Suspect]
     Indication: HYPERTENSION
     Dosage: 20/5 MG (1 IN 1 D), PER ORAL
     Route: 048
     Dates: start: 20080101, end: 20110901
  3. METOPROLOL SUCCINATE [Concomitant]

REACTIONS (3)
  - INFARCTION [None]
  - OEDEMA PERIPHERAL [None]
  - DRUG INEFFECTIVE [None]
